FAERS Safety Report 7007361-8 (Version None)
Quarter: 2010Q2

REPORT INFORMATION
  Report Type: 
  Country: None (occurrence: None)
  Receive Date: 20100225
  Receipt Date: 20091116
  Transmission Date: 20101027
  Serious: No
  Sender: FDA-Public Use
  Company Number: US-JNJFOC-20091105218

PATIENT
  Age: 15 Year
  Sex: Female
  Weight: 50.3493 kg

DRUGS (1)
  1. CHILDREN'S MOTRIN [Suspect]
     Indication: MENSTRUAL DISORDER
     Dosage: 300 MG, 1 IN 1 DAY, ORAL
     Route: 048

REACTIONS (1)
  - THROAT IRRITATION [None]
